FAERS Safety Report 5477746-X (Version None)
Quarter: 2007Q4

REPORT INFORMATION
  Report Type: 
  Country: None (occurrence: None)
  Receive Date: 20071002
  Receipt Date: 20071002
  Transmission Date: 20080405
  Serious: Yes (Hospitalization)
  Sender: FDA-Public Use
  Company Number: None

PATIENT
  Age: 39 Year
  Sex: Female
  Weight: 77.1115 kg

DRUGS (2)
  1. NITROFURANTOIN (MONOHYDRATE/MACROCRYSTALS) [Suspect]
     Indication: URINARY TRACT INFECTION
     Dosage: 1 CAP 2 X A DAY PO
     Route: 048
     Dates: start: 20070915, end: 20070922
  2. NITROFURANTOIN MACROCRYSTALLINE [Suspect]
     Indication: URINARY TRACT INFECTION
     Dosage: 1 CAP BEDTIME PO
     Route: 048
     Dates: start: 20070925, end: 20070926

REACTIONS (7)
  - ASTHMA [None]
  - INFECTION [None]
  - INFLUENZA LIKE ILLNESS [None]
  - PNEUMONIA [None]
  - RASH GENERALISED [None]
  - VISUAL DISTURBANCE [None]
  - VOMITING [None]
